FAERS Safety Report 11122119 (Version 1)
Quarter: 2015Q2

REPORT INFORMATION
  Report Type: Spontaneous
  Country: NL (occurrence: NL)
  Receive Date: 20150519
  Receipt Date: 20150519
  Transmission Date: 20150821
  Serious: Yes (Other)
  Sender: FDA-Public Use
  Company Number: NL-TOLMAR, INC.-2015NL004272

PATIENT
  Age: 64 Year
  Sex: Male

DRUGS (1)
  1. ELIGARD [Suspect]
     Active Substance: LEUPROLIDE ACETATE
     Indication: PRODUCT USED FOR UNKNOWN INDICATION
     Dosage: UNK, ONCE EVERY 6 MONTH
     Route: 065

REACTIONS (3)
  - Prostatic specific antigen increased [Unknown]
  - Drug ineffective [Unknown]
  - Metastases to bone [Unknown]

NARRATIVE: CASE EVENT DATE: 20150422
